FAERS Safety Report 9239994 (Version 1)
Quarter: 2013Q2

REPORT INFORMATION
  Report Type: Spontaneous
  Country: FR (occurrence: FR)
  Receive Date: 20130418
  Receipt Date: 20130418
  Transmission Date: 20140414
  Serious: Yes (Other)
  Sender: FDA-Public Use
  Company Number: FR-VIIV HEALTHCARE LIMITED-B0881880A

PATIENT
  Age: 38 Year
  Sex: Male

DRUGS (2)
  1. KIVEXA [Suspect]
     Indication: HIV INFECTION CDC CATEGORY A2
     Dosage: 1UNIT PER DAY
     Route: 048
     Dates: start: 20120918, end: 20121007
  2. INTELENCE [Suspect]
     Indication: HIV INFECTION CDC CATEGORY A2
     Dosage: 1UNIT PER DAY
     Route: 048
     Dates: start: 20120918, end: 20121007

REACTIONS (5)
  - Influenza like illness [Recovered/Resolved]
  - Pyrexia [Recovered/Resolved]
  - Chills [Recovered/Resolved]
  - Myalgia [Recovered/Resolved]
  - Bronchial disorder [Recovered/Resolved]
